FAERS Safety Report 16722495 (Version 2)
Quarter: 2019Q3

REPORT INFORMATION
  Report Type: Report from Study
  Country: CA (occurrence: CA)
  Receive Date: 20190820
  Receipt Date: 20190828
  Transmission Date: 20191005
  Serious: Yes (Hospitalization, Other)
  Sender: FDA-Public Use
  Company Number: PHHO2019CA000903

PATIENT
  Age: 7 Year
  Sex: Female
  Weight: 34.2 kg

DRUGS (14)
  1. TISAGENLECLEUCEL. [Suspect]
     Active Substance: TISAGENLECLEUCEL
     Indication: ACUTE LYMPHOCYTIC LEUKAEMIA
     Dosage: NO TREATMENT
     Route: 065
  2. CYCLOPHOSPHAMIDE. [Concomitant]
     Active Substance: CYCLOPHOSPHAMIDE
     Indication: LEUKAEMIA
     Dosage: 490 MG, QD
     Route: 042
     Dates: start: 20180207
  3. IMMUNGLOBULIN [Suspect]
     Active Substance: HUMAN IMMUNOGLOBULIN G
     Indication: BLOOD IMMUNOGLOBULIN G DECREASED
     Dosage: NO TREATMENT
     Route: 065
  4. CYCLOPHOSPHAMIDE. [Concomitant]
     Active Substance: CYCLOPHOSPHAMIDE
     Dosage: 1140 MG OVER 1 HOUR
     Route: 042
     Dates: start: 20190117
  5. CYTARABINE. [Concomitant]
     Active Substance: CYTARABINE
     Indication: LEUKAEMIA
     Dosage: 85 MG, QD X4
     Route: 065
     Dates: start: 20190117, end: 20190120
  6. TISAGENLECLEUCEL. [Suspect]
     Active Substance: TISAGENLECLEUCEL
     Dosage: 0.6 X10^8 CELLS
     Route: 042
     Dates: start: 20190312, end: 20190312
  7. IMMUNGLOBULIN [Suspect]
     Active Substance: HUMAN IMMUNOGLOBULIN G
     Dosage: UNK
     Route: 065
     Dates: start: 20190111
  8. TRIPLE [Concomitant]
     Active Substance: BACITRACIN\NEOMYCIN SULFATE\POLYMYXIN B SULFATE
     Indication: LEUKAEMIA
     Dosage: UNK UNK, QD
     Route: 065
     Dates: start: 20190130, end: 20190130
  9. LEVOFLOXACIN. [Concomitant]
     Active Substance: LEVOFLOXACIN
     Indication: PROPHYLAXIS
     Dosage: 350 MG, QD
     Route: 048
  10. HYDROCORTISONE. [Concomitant]
     Active Substance: HYDROCORTISONE
     Indication: LEUKAEMIA
     Dosage: 12 MG, QD, IT
     Route: 065
     Dates: start: 20181221, end: 20190131
  11. METHOTREXATE. [Concomitant]
     Active Substance: METHOTREXATE
     Indication: LEUKAEMIA
     Dosage: 22.5 MG, QW
     Route: 048
     Dates: start: 20190103
  12. 6 MP [Concomitant]
     Active Substance: MERCAPTOPURINE
     Indication: LEUKAEMIA
     Dosage: 90 MG, QD
     Route: 048
  13. ETOPOSIDE. [Concomitant]
     Active Substance: ETOPOSIDE
     Indication: LEUKAEMIA
     Dosage: 112 MG, QD
     Route: 042
     Dates: start: 20190207
  14. VINCRISTINE [Concomitant]
     Active Substance: VINCRISTINE
     Indication: LEUKAEMIA
     Dosage: 1.7 MG IV PUSH
     Route: 042
     Dates: start: 20190117

REACTIONS (9)
  - Pulmonary mass [Recovered/Resolved]
  - Splinter [Recovering/Resolving]
  - Erythema [Recovering/Resolving]
  - Pyrexia [Recovered/Resolved]
  - Pyrexia [Recovered/Resolved]
  - Staphylococcal infection [Recovered/Resolved]
  - Febrile neutropenia [Recovered/Resolved]
  - Anal infection [Recovered/Resolved]
  - Pneumonia [Recovered/Resolved]

NARRATIVE: CASE EVENT DATE: 20180111
